FAERS Safety Report 8111784-3 (Version None)
Quarter: 2012Q1

REPORT INFORMATION
  Report Type: 
  Country: None (occurrence: None)
  Receive Date: 20120203
  Receipt Date: 20120201
  Transmission Date: 20120608
  Serious: Yes (Other)
  Sender: FDA-Public Use
  Company Number: AU-ROXANE LABORATORIES, INC.-2012-RO-00576RO

PATIENT
  Age: 70 Year
  Sex: Male

DRUGS (5)
  1. FLUCYTOSINE [Suspect]
     Indication: DISSEMINATED CRYPTOCOCCOSIS
     Route: 042
  2. AZATHIOPRINE [Suspect]
     Dosage: 100 MG
  3. PREDNISOLONE [Suspect]
     Dosage: 10 MG
  4. FLUCYTOSINE [Suspect]
     Route: 042
  5. AMPHOTERICIN B [Suspect]
     Indication: DISSEMINATED CRYPTOCOCCOSIS

REACTIONS (2)
  - DISSEMINATED CRYPTOCOCCOSIS [None]
  - RENAL IMPAIRMENT [None]
